FAERS Safety Report 23545650 (Version 1)
Quarter: 2024Q1

REPORT INFORMATION
  Report Type: Spontaneous
  Country: US (occurrence: US)
  Receive Date: 20240220
  Receipt Date: 20240220
  Transmission Date: 20240410
  Serious: Yes (Other)
  Sender: FDA-Public Use
  Company Number: US-OTSUKA-2024_003960

PATIENT
  Age: 28 Year
  Sex: Male
  Weight: 136 kg

DRUGS (2)
  1. ABILIFY MAINTENA [Suspect]
     Active Substance: ARIPIPRAZOLE
     Indication: Schizoaffective disorder bipolar type
     Dosage: 400 MG
     Route: 065
  2. ABILIFY MAINTENA [Suspect]
     Active Substance: ARIPIPRAZOLE
     Dosage: 300 MG
     Route: 065

REACTIONS (5)
  - Mental impairment [Unknown]
  - Hallucination [Recovered/Resolved]
  - Blunted affect [Recovered/Resolved]
  - Delusion [Recovered/Resolved]
  - Drug effective for unapproved indication [Unknown]
